FAERS Safety Report 9337434 (Version 1)
Quarter: 2013Q2

REPORT INFORMATION
  Report Type: Spontaneous
  Country: US (occurrence: US)
  Receive Date: 20130607
  Receipt Date: 20130607
  Transmission Date: 20140414
  Serious: Yes (Other)
  Sender: FDA-Public Use
  Company Number: US-UCBSA-088191

PATIENT
  Sex: 0

DRUGS (1)
  1. CIMZIA [Suspect]
     Indication: CROHN^S DISEASE

REACTIONS (3)
  - Procedural intestinal perforation [Unknown]
  - Ileitis [Unknown]
  - Fatigue [Unknown]
